FAERS Safety Report 4384969-X (Version None)
Quarter: 2004Q2

REPORT INFORMATION
  Report Type: 
  Country: None (occurrence: None)
  Receive Date: 20040625
  Receipt Date: 20040615
  Transmission Date: 20050107
  Serious: Yes (Hospitalization)
  Sender: FDA-Public Use
  Company Number: PHNR2004AU01115

PATIENT
  Sex: Male

DRUGS (4)
  1. TEGRETOL [Suspect]
     Indication: CONVULSION
     Dates: start: 20010801
  2. DITROPAN [Concomitant]
  3. PLAVIX [Concomitant]
  4. LOPRESSOR [Concomitant]

REACTIONS (8)
  - DYSPNOEA [None]
  - DYSPNOEA PAROXYSMAL NOCTURNAL [None]
  - HYPOXIA [None]
  - ORTHOPNOEA [None]
  - PLEURAL EFFUSION [None]
  - PNEUMONITIS [None]
  - TACHYCARDIA [None]
  - VENTRICULAR HYPERTROPHY [None]
